FAERS Safety Report 10177763 (Version 1)
Quarter: 2014Q2

REPORT INFORMATION
  Report Type: Spontaneous
  Country: US (occurrence: US)
  Receive Date: 20140516
  Receipt Date: 20140516
  Transmission Date: 20141212
  Serious: Yes (Other)
  Sender: FDA-Public Use
  Company Number: US-ASTRAZENECA-2014SE31851

PATIENT
  Age: 54 Year
  Sex: Male

DRUGS (8)
  1. LISINOPRIL [Suspect]
     Indication: ANGIOTENSIN CONVERTING ENZYME
     Dosage: UNKNOWN UNK
     Route: 048
  2. BRILINTA [Suspect]
     Indication: ACUTE CORONARY SYNDROME
     Route: 048
     Dates: start: 201309, end: 201404
  3. HUMALOG [Concomitant]
     Indication: DIABETES MELLITUS
     Dosage: UNKNOWN UNK
  4. VICTOZA [Concomitant]
     Indication: DIABETES MELLITUS
     Dosage: UNKNOWN UNK
  5. ASPIRIN [Concomitant]
     Dosage: UNKNOWN UNK
  6. PRAVASTATIN [Concomitant]
     Dosage: UNKNOWN UNK
  7. EFFIENT [Concomitant]
  8. TYPICAL DIABETIC DRUGS [Concomitant]

REACTIONS (4)
  - Carotid artery thrombosis [Unknown]
  - Acute coronary syndrome [Unknown]
  - Diabetes mellitus [Unknown]
  - Drug ineffective [Unknown]
